FAERS Safety Report 9562963 (Version 1)
Quarter: 2013Q3

REPORT INFORMATION
  Report Type: Spontaneous
  Country: US (occurrence: US)
  Receive Date: 20130927
  Receipt Date: 20130927
  Transmission Date: 20140515
  Serious: Yes (Other)
  Sender: FDA-Public Use
  Company Number: CHPA2013US014731

PATIENT
  Age: 60 Year
  Sex: Male

DRUGS (2)
  1. ASCRIPTIN BUFFERED MAX STRENGTH CAPLETS [Suspect]
     Indication: PAIN
     Dosage: 3 OR 4, PRN
     Route: 048
  2. DILAUDID [Concomitant]
     Dates: start: 201308

REACTIONS (5)
  - Joint injury [Unknown]
  - Rotator cuff syndrome [Unknown]
  - Off label use [Unknown]
  - Incorrect dose administered [Unknown]
  - Inappropriate schedule of drug administration [Unknown]
